FAERS Safety Report 8423287-7 (Version None)
Quarter: 2012Q2

REPORT INFORMATION
  Report Type: 
  Country: None (occurrence: None)
  Receive Date: 20120608
  Receipt Date: 20120509
  Transmission Date: 20120825
  Serious: Yes (Hospitalization, Other)
  Sender: FDA-Public Use
  Company Number: KR-UCBSA-020642

PATIENT
  Age: 47 Year
  Sex: Female
  Weight: 65 kg

DRUGS (14)
  1. CIMZIA [Suspect]
     Indication: RHEUMATOID ARTHRITIS
     Dosage: NBR OF DOSES: 3
     Route: 058
     Dates: start: 20100603, end: 20100701
  2. CIMZIA [Suspect]
     Route: 058
     Dates: start: 20100716, end: 20101008
  3. METHYLPREDNISOLONE [Concomitant]
     Route: 048
     Dates: start: 20101101
  4. ADCAL [Concomitant]
     Indication: OSTEOPOROSIS
     Dosage: 1TAB BID
     Route: 048
     Dates: start: 20041025
  5. ACETAMINOPHEN [Concomitant]
     Indication: NASOPHARYNGITIS
     Route: 048
     Dates: start: 20101015, end: 20101019
  6. METHYLPREDNISOLONE [Concomitant]
     Route: 048
     Dates: start: 20101026, end: 20101026
  7. FEXOFENADINE [Concomitant]
     Indication: NASOPHARYNGITIS
     Route: 048
     Dates: start: 20101015, end: 20101019
  8. FOLIC ACID [Concomitant]
     Indication: PROPHYLAXIS
     Route: 048
     Dates: start: 19991218
  9. METHOTREXATE [Concomitant]
     Indication: RHEUMATOID ARTHRITIS
     Route: 048
     Dates: start: 20100407, end: 20101024
  10. METHYLPREDNISOLONE [Concomitant]
     Route: 048
     Dates: start: 20101027, end: 20101030
  11. REBAMIPIDE [Concomitant]
     Indication: PROPHYLAXIS
     Route: 048
     Dates: start: 19991230
  12. METHYLPREDNISOLONE [Concomitant]
     Indication: RHEUMATOID ARTHRITIS
     Route: 048
     Dates: start: 20100222, end: 20101025
  13. METHYLPREDNISOLONE [Concomitant]
     Route: 048
     Dates: start: 20101031, end: 20101031
  14. ACECLOFENAC [Concomitant]
     Indication: PAIN
     Route: 048
     Dates: start: 20100222

REACTIONS (2)
  - TUBERCULOSIS [None]
  - MENINGITIS ASEPTIC [None]
